FAERS Safety Report 10272832 (Version 3)
Quarter: 2014Q4

REPORT INFORMATION
  Report Type: Spontaneous
  Country: US (occurrence: None)
  Receive Date: 20140630
  Receipt Date: 20141008
  Transmission Date: 20150528
  Serious: Yes (Death, Hospitalization)
  Sender: FDA-Public Use
  Company Number: UNT-2014-002618

PATIENT
  Age: 16 Year
  Sex: Female
  Weight: 23.6 kg

DRUGS (2)
  1. TYVASO [Suspect]
     Active Substance: TREPROSTINIL
     Indication: COR PULMONALE CHRONIC
     Route: 055
     Dates: start: 20140409
  2. REVATIO (SILDENAFIL CITRATE) [Concomitant]

REACTIONS (3)
  - Interstitial lung disease [None]
  - Dyspnoea [None]
  - Condition aggravated [None]

NARRATIVE: CASE EVENT DATE: 20140613
